FAERS Safety Report 19923770 (Version 4)
Quarter: 2022Q1

REPORT INFORMATION
  Report Type: Report from Study
  Country: US (occurrence: US)
  Receive Date: 20211005
  Receipt Date: 20220207
  Transmission Date: 20220424
  Serious: Yes (Hospitalization)
  Sender: FDA-Public Use
  Company Number: US-TAIHO ONCOLOGY INC-EU-2021-03119

PATIENT
  Age: 74 Year
  Sex: Male

DRUGS (4)
  1. LONSURF [Suspect]
     Active Substance: TIPIRACIL HYDROCHLORIDE\TRIFLURIDINE
     Indication: Small intestine carcinoma
     Dosage: CYCLE UNKNOWN
     Route: 048
     Dates: start: 20201111
  2. BENZONATATE [Concomitant]
     Active Substance: BENZONATATE
  3. DESMOPRESSIN [Concomitant]
     Active Substance: DESMOPRESSIN
  4. OXYCODONE [Concomitant]
     Active Substance: OXYCODONE

REACTIONS (2)
  - Hip fracture [Unknown]
  - Off label use [Unknown]

NARRATIVE: CASE EVENT DATE: 20210925
